FAERS Safety Report 21278363 (Version 2)
Quarter: 2022Q4

REPORT INFORMATION
  Report Type: Spontaneous
  Country: US (occurrence: US)
  Receive Date: 20220831
  Receipt Date: 20221031
  Transmission Date: 20230113
  Serious: Yes (Hospitalization)
  Sender: FDA-Public Use
  Company Number: US-BIOGEN-2020BI00835811

PATIENT
  Sex: Female
  Weight: 150.4 kg

DRUGS (17)
  1. TYSABRI [Suspect]
     Active Substance: NATALIZUMAB
     Indication: Multiple sclerosis
     Dosage: INFUSED OVER 1 HOUR
     Route: 050
     Dates: start: 2017, end: 20200128
  2. TYSABRI [Suspect]
     Active Substance: NATALIZUMAB
     Dosage: INFUSED OVER 1 HOUR
     Route: 050
     Dates: start: 20170901
  3. TYSABRI [Suspect]
     Active Substance: NATALIZUMAB
     Dosage: EVERY OTHER MONTH DUE TO PREGNANCY
     Route: 050
     Dates: start: 20200609
  4. TYSABRI [Suspect]
     Active Substance: NATALIZUMAB
     Route: 050
     Dates: start: 20170901
  5. SYMMETREL [Concomitant]
     Active Substance: AMANTADINE HYDROCHLORIDE
     Indication: Product used for unknown indication
     Route: 050
  6. CALTRATE 600 + VITAMIN D3 [Concomitant]
     Indication: Product used for unknown indication
     Dosage: CALCIUM CARBONATE 600 MG, VITAMIN D3 800 IU
     Route: 050
  7. ZYRTEC [Concomitant]
     Active Substance: CETIRIZINE HYDROCHLORIDE
     Indication: Product used for unknown indication
     Route: 050
  8. LEXAPRO [Concomitant]
     Active Substance: ESCITALOPRAM OXALATE
     Indication: Product used for unknown indication
     Route: 050
  9. FERROUS FUMARATE [Concomitant]
     Active Substance: FERROUS FUMARATE
     Indication: Product used for unknown indication
     Route: 050
  10. SYNTHROID [Concomitant]
     Active Substance: LEVOTHYROXINE SODIUM
     Indication: Product used for unknown indication
     Route: 050
  11. METFORMIN HYDROCHLORIDE [Concomitant]
     Active Substance: METFORMIN HYDROCHLORIDE
     Indication: Product used for unknown indication
     Route: 050
  12. NAPROSYN [Concomitant]
     Active Substance: NAPROXEN
     Indication: Product used for unknown indication
     Dosage: TAKE WITH FOOD
     Route: 050
  13. ROXICODONE [Concomitant]
     Active Substance: OXYCODONE HYDROCHLORIDE
     Indication: Pain
     Dosage: TAKE 15 MG BY MOUTH EVERY 6 HOURS AS NEEDED FOR PAIN.
     Route: 050
  14. QULIPTA [Concomitant]
     Active Substance: ATOGEPANT
     Indication: Migraine
     Route: 050
     Dates: start: 20220629
  15. ZANAFLEX [Concomitant]
     Active Substance: TIZANIDINE HYDROCHLORIDE
     Indication: Product used for unknown indication
     Dosage: TAKE ONE TABLET BY MOUTH EVERY 6 HOURS AS NEEDED.
     Route: 050
     Dates: start: 20220629
  16. BOTOX [Concomitant]
     Active Substance: ONABOTULINUMTOXINA
     Indication: Migraine
     Dosage: EVERY 90 DAYS
     Route: 050
  17. OXYCODONE [Concomitant]
     Active Substance: OXYCODONE
     Indication: Muscle spasms
     Route: 050

REACTIONS (2)
  - Multiple sclerosis relapse [Unknown]
  - Maternal exposure during pregnancy [Unknown]

NARRATIVE: CASE EVENT DATE: 20200101
